FAERS Safety Report 13752751 (Version 2)
Quarter: 2017Q3

REPORT INFORMATION
  Report Type: Spontaneous
  Country: SI (occurrence: SI)
  Receive Date: 20170714
  Receipt Date: 20170810
  Transmission Date: 20171127
  Serious: Yes (Hospitalization)
  Sender: FDA-Public Use
  Company Number: SI-AMGEN-SVNSP2017105107

PATIENT
  Age: 71 Year
  Sex: Female

DRUGS (7)
  1. RANEXA [Suspect]
     Active Substance: RANOLAZINE
     Indication: PRODUCT USED FOR UNKNOWN INDICATION
     Dosage: 750 MG, BID
     Route: 048
     Dates: start: 201407, end: 201407
  2. SORVASTA [Suspect]
     Active Substance: ROSUVASTATIN CALCIUM
     Indication: PRODUCT USED FOR UNKNOWN INDICATION
     Dosage: 40 MG, QD
     Route: 048
     Dates: start: 201407, end: 201407
  3. BIOPREXANIL [Suspect]
     Active Substance: PERINDOPRIL ARGININE
     Indication: PRODUCT USED FOR UNKNOWN INDICATION
     Dosage: UNK
     Route: 048
     Dates: start: 201407, end: 201407
  4. CORYOL [Suspect]
     Active Substance: CARVEDILOL
     Indication: PRODUCT USED FOR UNKNOWN INDICATION
     Dosage: 12.5 MG, BID
     Route: 048
     Dates: start: 201407, end: 201407
  5. ALDACTONE [Suspect]
     Active Substance: SPIRONOLACTONE
     Indication: PRODUCT USED FOR UNKNOWN INDICATION
     Dosage: 25 MG, QD
     Route: 048
     Dates: start: 201407, end: 201407
  6. CONTRAST MEDIA [Suspect]
     Active Substance: UNSPECIFIED INGREDIENT
     Indication: PRODUCT USED FOR UNKNOWN INDICATION
     Dosage: SINGLE DOSE
     Route: 065
     Dates: start: 2014, end: 2014
  7. PROCORALAN [Suspect]
     Active Substance: IVABRADINE
     Indication: PRODUCT USED FOR UNKNOWN INDICATION
     Dosage: 7.5 MG, BID
     Route: 048
     Dates: start: 201407, end: 201407

REACTIONS (9)
  - Rhabdomyolysis [Recovered/Resolved]
  - Dizziness [Recovered/Resolved]
  - Myoglobin blood increased [Recovered/Resolved]
  - Product use issue [Recovered/Resolved]
  - Nausea [Recovered/Resolved]
  - Thyroid disorder [Recovered/Resolved]
  - Heart rate decreased [Recovered/Resolved]
  - Blood pressure systolic decreased [Recovered/Resolved]
  - Thyroxine increased [Recovered/Resolved]

NARRATIVE: CASE EVENT DATE: 2014
